FAERS Safety Report 9953864 (Version 2)
Quarter: 2014Q1

REPORT INFORMATION
  Report Type: Spontaneous
  Country: US (occurrence: US)
  Receive Date: 20140304
  Receipt Date: 20140304
  Transmission Date: 20141002
  Serious: No
  Sender: FDA-Public Use
  Company Number: US-AMGEN-USASP2013069949

PATIENT
  Age: 63 Year
  Sex: Female
  Weight: 61.22 kg

DRUGS (9)
  1. ENBREL [Suspect]
     Indication: PSORIATIC ARTHROPATHY
     Dosage: 50 MG, EVERY WEEK
     Route: 058
     Dates: start: 20130801
  2. METHOTREXATE [Concomitant]
     Dosage: 2.5 MG, UNK
     Route: 048
  3. LEVOTHYROXIN [Concomitant]
     Dosage: 100 MUG, UNK
     Route: 048
  4. BENICAR [Concomitant]
     Dosage: 20 MG, UNK
     Route: 048
  5. PLAVIX [Concomitant]
     Dosage: 75 MG, UNK
     Route: 048
  6. XALATAN [Concomitant]
     Dosage: 0.005 %, UNK
     Route: 047
  7. FOLIC ACID [Concomitant]
     Dosage: UNK
     Route: 048
  8. CRESTOR [Concomitant]
     Dosage: 5 MG, UNK
     Route: 048
  9. TRILIPIX [Concomitant]
     Dosage: 135 MG, UNK
     Route: 048

REACTIONS (7)
  - Cystitis [Recovered/Resolved]
  - Weight increased [Not Recovered/Not Resolved]
  - Dizziness [Unknown]
  - Blood glucose abnormal [Unknown]
  - Dysuria [Unknown]
  - Eye infection [Recovered/Resolved]
  - Injection site pain [Unknown]
